FAERS Safety Report 22318467 (Version 1)
Quarter: 2023Q2

REPORT INFORMATION
  Report Type: Spontaneous
  Country: US (occurrence: US)
  Receive Date: 20230515
  Receipt Date: 20230515
  Transmission Date: 20230722
  Serious: Yes (Hospitalization, Other)
  Sender: FDA-Public Use
  Company Number: US-APOTEX-2023AP008095

PATIENT
  Age: 12 Year
  Sex: Male

DRUGS (1)
  1. LITHIUM [Suspect]
     Active Substance: LITHIUM
     Indication: Bipolar disorder
     Dosage: UNK
     Route: 065

REACTIONS (4)
  - Mental status changes [Recovered/Resolved]
  - Antipsychotic drug level above therapeutic [Recovering/Resolving]
  - Tremor [Recovered/Resolved]
  - Toxicity to various agents [Recovering/Resolving]
